FAERS Safety Report 5352089-3 (Version None)
Quarter: 2007Q2

REPORT INFORMATION
  Report Type: 
  Country: None (occurrence: None)
  Receive Date: 20070611
  Receipt Date: 20070531
  Transmission Date: 20071010
  Serious: No
  Sender: FDA-Public Use
  Company Number: US-ASTRAZENECA-2006UW08311

PATIENT
  Age: 50 Year
  Sex: Female
  Weight: 100 kg

DRUGS (14)
  1. SEROQUEL [Suspect]
     Indication: DEPRESSION
     Route: 048
     Dates: end: 20050101
  2. SEROQUEL [Suspect]
     Indication: ANXIETY
     Route: 048
     Dates: end: 20050101
  3. SEROQUEL [Suspect]
     Indication: BIPOLAR DISORDER
     Route: 048
     Dates: end: 20050101
  4. CLOZARIL [Concomitant]
  5. GEODON [Concomitant]
     Dates: start: 20050101
  6. HALDOL [Concomitant]
  7. RISPERDAL [Concomitant]
  8. ZYPREXA [Concomitant]
     Dosage: 5 MG - 50 MG
     Dates: start: 20050101
  9. LEXAPRO [Concomitant]
  10. MELLARIL [Concomitant]
  11. EFFEXOR [Concomitant]
  12. PAXIL [Concomitant]
  13. SYNTHROID [Concomitant]
  14. ZOCOR [Concomitant]

REACTIONS (1)
  - DIABETES MELLITUS [None]
